FAERS Safety Report 7593092-2 (Version None)
Quarter: 2011Q3

REPORT INFORMATION
  Report Type: 
  Country: None (occurrence: None)
  Receive Date: 20110706
  Receipt Date: 20110628
  Transmission Date: 20111222
  Serious: Yes (Death, Hospitalization)
  Sender: FDA-Public Use
  Company Number: US-ROCHE-786840

PATIENT
  Age: 52 Year
  Sex: Male

DRUGS (1)
  1. ACTEMRA [Suspect]
     Route: 042

REACTIONS (2)
  - RENAL FAILURE [None]
  - ABDOMINAL PAIN [None]
